FAERS Safety Report 12584804 (Version 4)
Quarter: 2018Q2

REPORT INFORMATION
  Report Type: Report from Study
  Country: None (occurrence: CA)
  Receive Date: 20160722
  Receipt Date: 20180614
  Transmission Date: 20180711
  Serious: Yes (Hospitalization, Other)
  Sender: FDA-Public Use
  Company Number: CA-ABBVIE-13P-028-1103145-00

PATIENT
  Sex: Male
  Weight: 81.72 kg

DRUGS (9)
  1. ENBREL [Concomitant]
     Active Substance: ETANERCEPT
     Indication: PSORIATIC ARTHROPATHY
  2. IMURAN [Concomitant]
     Active Substance: AZATHIOPRINE
     Indication: PRODUCT USED FOR UNKNOWN INDICATION
     Dosage: LOW DOSE
  3. TECTA [Concomitant]
     Active Substance: PANTOPRAZOLE MAGNESIUM
     Indication: PRODUCT USED FOR UNKNOWN INDICATION
     Dates: start: 201011
  4. HUMIRA [Suspect]
     Active Substance: ADALIMUMAB
     Indication: PSORIASIS
     Route: 058
     Dates: start: 20120503, end: 2013
  5. HUMIRA [Suspect]
     Active Substance: ADALIMUMAB
     Route: 058
  6. BUDESONIDE. [Suspect]
     Active Substance: BUDESONIDE
     Indication: PRODUCT USED FOR UNKNOWN INDICATION
     Route: 065
     Dates: start: 201109
  7. ENBREL [Concomitant]
     Active Substance: ETANERCEPT
     Indication: PSORIASIS
  8. HUMIRA [Suspect]
     Active Substance: ADALIMUMAB
     Route: 058
     Dates: start: 20130603
  9. AZATHIOPRINE. [Suspect]
     Active Substance: AZATHIOPRINE
     Indication: PRODUCT USED FOR UNKNOWN INDICATION
     Dosage: A DAY
     Route: 065
     Dates: start: 201301

REACTIONS (14)
  - Abdominal adhesions [Recovered/Resolved]
  - Crohn^s disease [Recovered/Resolved]
  - Weight decreased [Recovered/Resolved]
  - Hepatic calcification [Unknown]
  - Intestinal fibrosis [Recovered/Resolved]
  - Cholelithiasis [Unknown]
  - Drug ineffective [Recovered/Resolved]
  - Intestinal scarring [Recovered/Resolved]
  - Enteritis [Unknown]
  - Ileal stenosis [Recovered/Resolved]
  - Anastomotic stenosis [Recovered/Resolved]
  - Crohn^s disease [Recovered/Resolved]
  - Intestinal mass [Unknown]
  - Abscess intestinal [Unknown]

NARRATIVE: CASE EVENT DATE: 2016
